FAERS Safety Report 8305557-6 (Version None)
Quarter: 2012Q2

REPORT INFORMATION
  Report Type: 
  Country: None (occurrence: None)
  Receive Date: 20120423
  Receipt Date: 20120416
  Transmission Date: 20120825
  Serious: Yes (Other)
  Sender: FDA-Public Use
  Company Number: DE-MERCK-1204DEU00049

PATIENT
  Age: 44 Year
  Sex: Female

DRUGS (1)
  1. FOSAPREPITANT DIMEGLUMINE [Suspect]
     Route: 042
     Dates: start: 20120328, end: 20120328

REACTIONS (4)
  - HYPERSENSITIVITY [None]
  - CHILLS [None]
  - FEELING HOT [None]
  - ERYTHEMA [None]
